APPROVED DRUG PRODUCT: GUANFACINE HYDROCHLORIDE
Active Ingredient: GUANFACINE HYDROCHLORIDE
Strength: EQ 1MG BASE
Dosage Form/Route: TABLET, EXTENDED RELEASE;ORAL
Application: A217638 | Product #001 | TE Code: AB
Applicant: FOSUN WANBANG (JIANGSU) PHARMACEUTICAL GROUP CO LTD
Approved: Jun 12, 2024 | RLD: No | RS: No | Type: RX